FAERS Safety Report 8960912 (Version 1)
Quarter: 2012Q4

REPORT INFORMATION
  Report Type: 
  Country: FR (occurrence: FR)
  Receive Date: 20121212
  Receipt Date: 20121212
  Transmission Date: 20130627
  Serious: Yes (Death, Hospitalization)
  Sender: FDA-Public Use
  Company Number: FR-NAPPMUNDI-GBR-2012-0012315

PATIENT
  Age: 89 Year
  Sex: Male

DRUGS (7)
  1. OXYNORMORO COMPRIME ORODISPERSIBLE 10MG [Suspect]
     Indication: PAIN
     Dosage: UNK mg, UNK
     Route: 048
     Dates: start: 20120908, end: 20120920
  2. OXYCONTIN [Suspect]
     Indication: PAIN
     Dosage: UNK mg, UNK
     Route: 048
     Dates: start: 20120824, end: 20120921
  3. GENTAMICINE [Suspect]
     Indication: INTERVERTEBRAL DISCITIS
     Dosage: UNK
     Route: 042
     Dates: start: 20120919, end: 20120919
  4. ORBENINE [Suspect]
     Indication: INTERVERTEBRAL DISCITIS
     Dosage: UNK
     Route: 042
     Dates: start: 20120919, end: 20120924
  5. LYRICA [Suspect]
     Indication: PAIN
     Dosage: 75 mg, UNK
     Dates: start: 20120824, end: 20120921
  6. LOVENOX [Suspect]
     Indication: ANTICOAGULANT THERAPY
     Dosage: 8000 IU, UNK
     Route: 058
     Dates: start: 20120825, end: 20120922
  7. TRIMEBUTINE [Suspect]
     Indication: MUSCLE SPASMS
     Dosage: UNK
     Route: 048
     Dates: start: 20120912, end: 20120924

REACTIONS (2)
  - Renal failure acute [Fatal]
  - Intervertebral discitis [Unknown]
